FAERS Safety Report 11182932 (Version 1)
Quarter: 2015Q2

REPORT INFORMATION
  Report Type: Spontaneous
  Country: US (occurrence: US)
  Receive Date: 20150611
  Receipt Date: 20150611
  Transmission Date: 20150821
  Serious: Yes (Hospitalization)
  Sender: FDA-Public Use
  Company Number: US-JAZZ-JPI-P-022558

PATIENT
  Age: 40 Year
  Sex: Female

DRUGS (6)
  1. XYREM [Suspect]
     Active Substance: SODIUM OXYBATE
     Indication: NARCOLEPSY
     Dosage: 4 G, FIRST DOSE
     Route: 048
     Dates: start: 20120509, end: 2012
  2. AMPHETAMINE, DEXTROAMPHET MIXED SALTS [Concomitant]
     Indication: NARCOLEPSY
     Route: 065
  3. XYREM [Suspect]
     Active Substance: SODIUM OXYBATE
     Dosage: DOSE ADJUSTMENTS
     Route: 048
     Dates: start: 2012, end: 2012
  4. XYREM [Suspect]
     Active Substance: SODIUM OXYBATE
     Dosage: 4.5 G, BID
     Route: 048
     Dates: start: 2012, end: 20120627
  5. XYREM [Suspect]
     Active Substance: SODIUM OXYBATE
     Dosage: 4.5 G, BID
     Route: 048
  6. XYREM [Suspect]
     Active Substance: SODIUM OXYBATE
     Dosage: 2 G, SECOND DOSE
     Route: 048
     Dates: start: 20120509, end: 2012

REACTIONS (9)
  - Drug withdrawal syndrome [Unknown]
  - Bipolar disorder [Unknown]
  - Mental disorder [Unknown]
  - Fatigue [Unknown]
  - Disturbance in attention [Unknown]
  - Condition aggravated [Unknown]
  - Psychotic disorder [Unknown]
  - Delusion [Unknown]
  - Somnolence [Unknown]

NARRATIVE: CASE EVENT DATE: 2012
